FAERS Safety Report 7698967-1 (Version None)
Quarter: 2011Q3

REPORT INFORMATION
  Report Type: 
  Country: None (occurrence: None)
  Receive Date: 20110819
  Receipt Date: 20110815
  Transmission Date: 20111222
  Serious: Yes (Hospitalization, Other)
  Sender: FDA-Public Use
  Company Number: JP-B.I. PHARMACEUTICALS,INC./RIDGEFIELD-2011-BP-19965NB

PATIENT
  Sex: Female

DRUGS (14)
  1. LANSOPRAZOLE [Concomitant]
     Dosage: 30 MG
     Route: 048
  2. MYOCOR [Concomitant]
     Dosage: 25 MG
     Route: 042
  3. CARVEDILOL [Concomitant]
     Dosage: 1.25 MG
     Route: 048
  4. BORRAZA-G [Concomitant]
     Route: 054
  5. DALTEPARIN SODIUM [Suspect]
     Dosage: 10000 U
     Route: 042
  6. ROCEPHIN [Concomitant]
     Dosage: 2 G
     Route: 042
  7. PRADAXA [Suspect]
     Indication: ATRIAL FIBRILLATION
     Dosage: 220 MG
     Route: 048
     Dates: start: 20110713, end: 20110715
  8. GRAMALIL [Concomitant]
     Dosage: 50 MG
     Route: 048
  9. SENNOSIDE [Concomitant]
     Dosage: 24 MG
     Route: 048
  10. DIGILANOGEN C [Concomitant]
     Dosage: 0.4 MG
     Route: 042
  11. ASPARA K [Concomitant]
     Dosage: 20 MEQ
     Route: 042
  12. LASIX [Concomitant]
     Dosage: 20 MG
     Route: 042
  13. TANATRIL [Concomitant]
     Dosage: 5 MG
     Route: 048
  14. ADALAT [Concomitant]
     Dosage: 10 MG
     Route: 048

REACTIONS (2)
  - RECTOSIGMOID CANCER [None]
  - MELAENA [None]
